FAERS Safety Report 4473001-5 (Version None)
Quarter: 2004Q4

REPORT INFORMATION
  Report Type: 
  Country: None (occurrence: None)
  Receive Date: 20041013
  Receipt Date: 20041005
  Transmission Date: 20050328
  Serious: Yes (Hospitalization)
  Sender: FDA-Public Use
  Company Number: NO-ROCHE-382473

PATIENT
  Age: 38 Year
  Sex: Male

DRUGS (2)
  1. RIVOTRIL [Suspect]
     Indication: EPILEPSY
     Dosage: UP TO 6 PER DAY.
     Route: 048
  2. TEMGESIC [Concomitant]
     Route: 060

REACTIONS (4)
  - CHEST PAIN [None]
  - DRUG ABUSER [None]
  - HAEMOPTYSIS [None]
  - MEDICATION ERROR [None]
